FAERS Safety Report 10045006 (Version 1)
Quarter: 2014Q1

REPORT INFORMATION
  Report Type: Spontaneous
  Country: US (occurrence: None)
  Receive Date: 20140306
  Receipt Date: 20140306
  Transmission Date: 20141002
  Serious: Yes (Life-Threatening, Hospitalization)
  Sender: FDA-Public Use
  Company Number: 163-21880-13053176

PATIENT
  Age: 69 Year
  Sex: Male

DRUGS (1)
  1. REVLIMID [Suspect]
     Indication: MYELODYSPLASTIC SYNDROME
     Dosage: PERMANENTLY DISCONTINUED (21 IN 21 D)
     Route: 048
     Dates: start: 20130401

REACTIONS (2)
  - Myelodysplastic syndrome [None]
  - Disease progression [None]
